FAERS Safety Report 6522329-3 (Version None)
Quarter: 2009Q4

REPORT INFORMATION
  Report Type: 
  Country: None (occurrence: None)
  Receive Date: 20091230
  Receipt Date: 20091221
  Transmission Date: 20100525
  Serious: Yes (Other)
  Sender: FDA-Public Use
  Company Number: B0619615A

PATIENT
  Sex: Male
  Weight: 86 kg

DRUGS (1)
  1. SERETAIDE [Suspect]
     Indication: ASTHMA
     Route: 055
     Dates: end: 20091215

REACTIONS (3)
  - ASTHMATIC CRISIS [None]
  - DRUG INEFFECTIVE [None]
  - PRODUCT QUALITY ISSUE [None]
